FAERS Safety Report 16635960 (Version 4)
Quarter: 2019Q3

REPORT INFORMATION
  Report Type: Report from Study
  Country: US (occurrence: US)
  Receive Date: 20190726
  Receipt Date: 20190815
  Transmission Date: 20191004
  Serious: Yes (Hospitalization)
  Sender: FDA-Public Use
  Company Number: US-JNJFOC-20190724350

PATIENT
  Age: 24 Year
  Sex: Male
  Weight: 111.1 kg

DRUGS (11)
  1. INFLIXIMAB, RECOMBINANT [Suspect]
     Active Substance: INFLIXIMAB
     Indication: INFLAMMATORY BOWEL DISEASE
     Route: 042
     Dates: start: 20120425, end: 20190314
  2. VITAMIN B6 [Concomitant]
     Active Substance: PYRIDOXINE HYDROCHLORIDE
     Route: 065
  3. RIFAPENTINE [Concomitant]
     Active Substance: RIFAPENTINE
  4. FAMOTIDINE. [Concomitant]
     Active Substance: FAMOTIDINE
  5. BUDESONIDE. [Concomitant]
     Active Substance: BUDESONIDE
  6. ISONIAZID. [Concomitant]
     Active Substance: ISONIAZID
  7. HYOSCYAMINE SULFATE. [Concomitant]
     Active Substance: HYOSCYAMINE SULFATE
     Route: 065
  8. OXYCODONE [Concomitant]
     Active Substance: OXYCODONE
  9. LANSOPRAZOLE. [Concomitant]
     Active Substance: LANSOPRAZOLE
     Route: 065
  10. GRANISETRON [Concomitant]
     Active Substance: GRANISETRON
  11. NALOXONE [Concomitant]
     Active Substance: NALOXONE

REACTIONS (2)
  - Crohn^s disease [Recovered/Resolved]
  - Crohn^s disease [Recovered/Resolved]

NARRATIVE: CASE EVENT DATE: 20190712
